FAERS Safety Report 13277471 (Version 1)
Quarter: 2017Q1

REPORT INFORMATION
  Report Type: Spontaneous
  Country: JP (occurrence: JP)
  Receive Date: 20170228
  Receipt Date: 20170228
  Transmission Date: 20170428
  Serious: Yes (Other)
  Sender: FDA-Public Use
  Company Number: JP-BAYER-2016-245801

PATIENT
  Age: 43 Year
  Sex: Female

DRUGS (2)
  1. MIRENA [Suspect]
     Active Substance: LEVONORGESTREL
     Indication: CONTRACEPTION
     Dosage: UNK
     Route: 015
     Dates: start: 2011, end: 20170111
  2. MIRENA [Suspect]
     Active Substance: LEVONORGESTREL
     Indication: MENORRHAGIA

REACTIONS (8)
  - Stillbirth [None]
  - Pregnancy with contraceptive device [Recovered/Resolved]
  - Caesarean section [None]
  - Haemorrhage in pregnancy [None]
  - Uterine mass [None]
  - Premature delivery [None]
  - Drug ineffective [None]
  - Uterine contractions abnormal [None]

NARRATIVE: CASE EVENT DATE: 2016
